FAERS Safety Report 10162282 (Version 2)
Quarter: 2014Q2

REPORT INFORMATION
  Report Type: Spontaneous
  Country: FI (occurrence: FI)
  Receive Date: 20140509
  Receipt Date: 20140509
  Transmission Date: 20141212
  Serious: Yes (Other)
  Sender: FDA-Public Use
  Company Number: FI-SA-2014SA036716

PATIENT
  Sex: Male

DRUGS (4)
  1. MULTAQ [Suspect]
     Indication: ATRIAL FIBRILLATION
     Route: 048
     Dates: start: 201004, end: 201403
  2. LOSARTAN [Concomitant]
  3. WARFARIN [Concomitant]
  4. ACETYLSALICYLIC ACID [Concomitant]
     Dates: start: 2013, end: 201404

REACTIONS (5)
  - Pulmonary infarction [Recovering/Resolving]
  - Interstitial lung disease [Recovering/Resolving]
  - Lung disorder [Unknown]
  - Dyspnoea [Recovering/Resolving]
  - Cough [Recovering/Resolving]
